FAERS Safety Report 7936722-5 (Version None)
Quarter: 2011Q4

REPORT INFORMATION
  Report Type: 
  Country: None (occurrence: None)
  Receive Date: 20111123
  Receipt Date: 20111117
  Transmission Date: 20120403
  Serious: Yes (Hospitalization)
  Sender: FDA-Public Use
  Company Number: US-ABBOTT-11P-163-0875638-00

PATIENT
  Sex: Male
  Weight: 102.15 kg

DRUGS (7)
  1. ULORIC [Concomitant]
     Indication: GOUT
  2. HUMIRA [Suspect]
     Indication: RHEUMATOID ARTHRITIS
     Dates: start: 20080101, end: 20110201
  3. DIOVAN HCT [Concomitant]
     Indication: HYPERTENSION
  4. METOPROLOL TARTRATE [Concomitant]
     Indication: HYPERTENSION
  5. COLCRYS [Concomitant]
     Indication: GOUT
  6. FLECAINIDE ACETATE [Concomitant]
     Indication: ATRIAL FIBRILLATION
  7. POTASSIUM CHLORIDE [Concomitant]
     Indication: MINERAL SUPPLEMENTATION

REACTIONS (13)
  - STAPHYLOCOCCAL ABSCESS [None]
  - PAIN [None]
  - PSORIASIS [None]
  - JOINT SWELLING [None]
  - INFLAMMATION [None]
  - DRUG WITHDRAWAL SYNDROME [None]
  - GROIN ABSCESS [None]
  - TREMOR [None]
  - RHEUMATOID ARTHRITIS [None]
  - ESCHERICHIA INFECTION [None]
  - PERINEAL PAIN [None]
  - FEELING ABNORMAL [None]
  - GAIT DISTURBANCE [None]
